FAERS Safety Report 6860792-9 (Version None)
Quarter: 2010Q2

REPORT INFORMATION
  Report Type: 
  Country: None (occurrence: None)
  Receive Date: 20100528
  Receipt Date: 20091110
  Transmission Date: 20101027
  Serious: Yes (Hospitalization)
  Sender: FDA-Public Use
  Company Number: CIP08002830

PATIENT
  Age: 80 Year
  Sex: Female
  Weight: 81.6 kg

DRUGS (9)
  1. ACTONEL [Suspect]
     Indication: OSTEOPOROSIS
     Dosage: 35 MG ONCE WEEKLY, ORAL
     Route: 048
     Dates: start: 20021017, end: 20060101
  2. FOSAMAX [Suspect]
     Indication: OSTEOPOROSIS
     Dosage: 70 MG ONCE WEEKLY, ORAL
     Route: 048
     Dates: start: 20010515, end: 20020101
  3. BONIVA [Suspect]
     Indication: OSTEOPOROSIS
     Dosage: 150 MG ONCE WEEKLY, ORAL
     Route: 048
     Dates: start: 20060519, end: 20071201
  4. VERAPAMIL /00014302/ (VERAPAMIL HYDROCHLORIDE) [Concomitant]
  5. HYDROCHLOROTHIAZIDE [Concomitant]
  6. OMEPRAZOLE [Concomitant]
  7. MULTIPLE VITAMINS (ASCORBIC ACID, ERGOCALCIFEROL, FOLIC ACID, RETINOL, [Concomitant]
  8. CALCIUM D /00944201/ (CALCIUM CARBONATE, COLECALCIFEROL) [Concomitant]
  9. ADVAIR DISKUS 100/50 [Concomitant]

REACTIONS (30)
  - ABSCESS JAW [None]
  - BONE DISORDER [None]
  - DENTAL CARIES [None]
  - DENTAL FISTULA [None]
  - DEPRESSION [None]
  - DYSPHAGIA [None]
  - EATING DISORDER [None]
  - ERYTHEMA [None]
  - FACE OEDEMA [None]
  - FACIAL NERVE DISORDER [None]
  - GINGIVAL DISORDER [None]
  - GINGIVAL SWELLING [None]
  - HAEMORRHAGE [None]
  - HYPOAESTHESIA ORAL [None]
  - OSTEOMYELITIS ACUTE [None]
  - OSTEOMYELITIS CHRONIC [None]
  - OSTEONECROSIS [None]
  - OSTEOSCLEROSIS [None]
  - PAIN IN JAW [None]
  - POST PROCEDURAL FISTULA [None]
  - POST PROCEDURAL INFECTION [None]
  - PRIMARY SEQUESTRUM [None]
  - PROCEDURAL PAIN [None]
  - PULPITIS DENTAL [None]
  - PURULENT DISCHARGE [None]
  - SKIN DISORDER [None]
  - TOOTH ABSCESS [None]
  - TOOTHACHE [None]
  - WOUND DEHISCENCE [None]
  - WOUND DRAINAGE [None]
